FAERS Safety Report 13494737 (Version 1)
Quarter: 2017Q2

REPORT INFORMATION
  Report Type: Report from Study
  Country: BR (occurrence: BR)
  Receive Date: 20170428
  Receipt Date: 20170428
  Transmission Date: 20170830
  Serious: Yes (Death, Hospitalization, Other)
  Sender: FDA-Public Use
  Company Number: BR-UCBSA-2017016547

PATIENT
  Age: 81 Year
  Sex: Female
  Weight: 39 kg

DRUGS (3)
  1. ALENIA [Concomitant]
     Active Substance: BUDESONIDE\FORMOTEROL FUMARATE
     Indication: PULMONARY OEDEMA
     Dosage: UNK
     Route: 045
     Dates: start: 2014, end: 20170221
  2. CERTOLIZUMAB PEGOL [Suspect]
     Active Substance: CERTOLIZUMAB PEGOL
     Indication: RHEUMATOID ARTHRITIS
     Dosage: UNK
     Dates: start: 201611, end: 20170221
  3. TIOTROPIO [Concomitant]
     Active Substance: TIOTROPIUM BROMIDE
     Indication: PULMONARY OEDEMA
     Dosage: UNK
     Route: 045
     Dates: start: 2014, end: 20170221

REACTIONS (3)
  - Cardiac arrest [Fatal]
  - Respiratory arrest [Fatal]
  - Organ failure [Fatal]

NARRATIVE: CASE EVENT DATE: 20170203
